FAERS Safety Report 6651980-5 (Version None)
Quarter: 2010Q1

REPORT INFORMATION
  Report Type: 
  Country: None (occurrence: None)
  Receive Date: 20100323
  Receipt Date: 20100315
  Transmission Date: 20100710
  Serious: Yes (Death)
  Sender: FDA-Public Use
  Company Number: 2010JP000961

PATIENT
  Sex: Female
  Weight: 48 kg

DRUGS (8)
  1. PROGRAF [Suspect]
     Indication: RHEUMATOID ARTHRITIS
     Dosage: 1 MG, UID/QD, ORAL
     Route: 048
     Dates: start: 20071109
  2. RHEUMATREX [Suspect]
     Dosage: ORAL
     Route: 048
     Dates: start: 20071101
  3. PREDNISOLONE [Concomitant]
  4. ASTOS CA          (ASPARTATE CALCIUM) [Concomitant]
  5. CALFINA  (ALFACALCIDOL) [Concomitant]
  6. BONALON (ALENDRONIC ACID) [Concomitant]
  7. LIMETHASON (DEXAMETHASONE PALMITATE) [Concomitant]
  8. SWORD (PRULIFLOXACIN) [Concomitant]

REACTIONS (7)
  - BLOOD DISORDER [None]
  - BLOOD PRESSURE DECREASED [None]
  - HEPATIC FUNCTION ABNORMAL [None]
  - LYMPHOMA [None]
  - OPPORTUNISTIC INFECTION [None]
  - PNEUMONIA BACTERIAL [None]
  - RESPIRATORY FAILURE [None]
